FAERS Safety Report 15029779 (Version 1)
Quarter: 2018Q2

REPORT INFORMATION
  Report Type: Spontaneous
  Country: NL (occurrence: NL)
  Receive Date: 20180619
  Receipt Date: 20180619
  Transmission Date: 20180711
  Serious: Yes (Hospitalization)
  Sender: FDA-Public Use
  Company Number: NL-TEVA-2018-NL-908111

PATIENT
  Age: 55 Year
  Sex: Female
  Weight: 80 kg

DRUGS (4)
  1. NAPROXEN TABLET 500MG TABLET, 500 MG (MILLIGRAM) [Suspect]
     Active Substance: NAPROXEN SODIUM
     Indication: PROCEDURAL PAIN
     Dosage: 500 MILLIGRAM DAILY; 2DD 1
     Dates: start: 20180423, end: 20180424
  2. NAPROXEN TABLET 500MG TABLET, 500 MG (MILLIGRAM) [Suspect]
     Active Substance: NAPROXEN SODIUM
     Indication: ABDOMINAL HERNIA
  3. OMEPRAZOL [Concomitant]
     Active Substance: OMEPRAZOLE
     Route: 065
  4. PARACETAMOL [Concomitant]
     Active Substance: ACETAMINOPHEN
     Route: 065

REACTIONS (1)
  - Pericarditis [Unknown]

NARRATIVE: CASE EVENT DATE: 20180423
